FAERS Safety Report 5133727-7 (Version None)
Quarter: 2006Q4

REPORT INFORMATION
  Report Type: 
  Country: None (occurrence: None)
  Receive Date: 20061024
  Receipt Date: 20061020
  Transmission Date: 20070319
  Serious: Yes (Other)
  Sender: FDA-Public Use
  Company Number: US-GLAXOSMITHKLINE-A0624323A

PATIENT
  Age: 83 Year
  Sex: Male

DRUGS (4)
  1. ECOTRIN REGULAR STRENGTH TABLETS [Suspect]
     Route: 048
  2. CADUET [Concomitant]
  3. DIOVAN [Concomitant]
  4. SINEMET [Concomitant]

REACTIONS (1)
  - HEPATIC ENZYME INCREASED [None]
